FAERS Safety Report 4462742-1 (Version None)
Quarter: 2004Q3

REPORT INFORMATION
  Report Type: 
  Country: None (occurrence: None)
  Receive Date: 20040930
  Receipt Date: 20040924
  Transmission Date: 20050211
  Serious: Yes (Hospitalization)
  Sender: FDA-Public Use
  Company Number: US-JNJFOC-20040908954

PATIENT
  Sex: Female
  Weight: 58.06 kg

DRUGS (2)
  1. REMICADE [Suspect]
     Indication: RHEUMATOID ARTHRITIS
     Route: 042
  2. THYROID MEDICINE [Concomitant]

REACTIONS (4)
  - CONTUSION [None]
  - EPHELIDES [None]
  - LUPUS-LIKE SYNDROME [None]
  - PLATELET COUNT DECREASED [None]
